FAERS Safety Report 10564907 (Version 1)
Quarter: 2014Q4

REPORT INFORMATION
  Report Type: Report from Study
  Country: US (occurrence: US)
  Receive Date: 20141105
  Receipt Date: 20141105
  Transmission Date: 20150529
  Serious: Yes (Hospitalization)
  Sender: FDA-Public Use
  Company Number: US-ROCHE-1481470

PATIENT
  Age: 52 Year
  Sex: Female

DRUGS (12)
  1. HERCEPTIN [Suspect]
     Active Substance: TRASTUZUMAB
     Dosage: COMPLETED 3 MONTHS AGO
     Route: 065
     Dates: start: 201403, end: 2014
  2. NEULASTA [Concomitant]
     Active Substance: PEGFILGRASTIM
     Indication: NEUTROPENIA
     Route: 065
     Dates: start: 2013, end: 2013
  3. BENADRYL [Concomitant]
     Active Substance: DIPHENHYDRAMINE HYDROCHLORIDE
     Route: 042
  4. RADIATION TREATMENT [Concomitant]
     Active Substance: RADIATION THERAPY
     Indication: INFLAMMATORY CARCINOMA OF THE BREAST
     Route: 065
     Dates: start: 201402
  5. ANASTROZOLE. [Concomitant]
     Active Substance: ANASTROZOLE
     Dosage: FOR 90 DAYS
     Route: 065
  6. HERCEPTIN [Suspect]
     Active Substance: TRASTUZUMAB
     Indication: INFLAMMATORY CARCINOMA OF THE BREAST
     Dosage: 12 ROUNDS FOR 7 MONTHS, CONTINUED WITH FEC
     Route: 065
     Dates: start: 20130507
  7. EPIRUBICIN [Concomitant]
     Active Substance: EPIRUBICIN
     Indication: INFLAMMATORY CARCINOMA OF THE BREAST
     Dosage: FOR AUG, SEP, OCT
     Route: 065
     Dates: start: 201308, end: 201410
  8. CYTOXAN [Concomitant]
     Active Substance: CYCLOPHOSPHAMIDE
     Indication: INFLAMMATORY CARCINOMA OF THE BREAST
     Dosage: FOR AUG, SEP, OCT
     Route: 065
     Dates: start: 201308, end: 201310
  9. FLUOROURACIL. [Concomitant]
     Active Substance: FLUOROURACIL
     Indication: INFLAMMATORY CARCINOMA OF THE BREAST
     Dosage: FOR AUG, SEP, OCT
     Route: 065
     Dates: start: 201308, end: 201310
  10. TAXOL [Concomitant]
     Active Substance: PACLITAXEL
     Indication: INFLAMMATORY CARCINOMA OF THE BREAST
     Dosage: 12 ROUNDS FOR SEVEN MONTHS
     Route: 065
     Dates: start: 20130507
  11. NEUPOGEN [Concomitant]
     Active Substance: FILGRASTIM
     Indication: NEUTROPENIA
     Route: 065
  12. RIBAVIRIN. [Suspect]
     Active Substance: RIBAVIRIN
     Indication: HEPATITIS C
     Dosage: FOR A YEAR
     Route: 065
     Dates: start: 2004, end: 2005

REACTIONS (12)
  - Headache [Recovered/Resolved]
  - Retching [Recovered/Resolved]
  - Nausea [Not Recovered/Not Resolved]
  - Asthenia [Not Recovered/Not Resolved]
  - Decreased appetite [Not Recovered/Not Resolved]
  - Cyst [Recovered/Resolved]
  - Dehydration [Recovered/Resolved]
  - Vomiting [Recovered/Resolved]
  - Gastroenteritis viral [Unknown]
  - Neutropenia [Recovered/Resolved]
  - Diarrhoea [Recovered/Resolved]
  - Herpes zoster [Recovered/Resolved]

NARRATIVE: CASE EVENT DATE: 2007
